FAERS Safety Report 7243242-2 (Version None)
Quarter: 2011Q1

REPORT INFORMATION
  Report Type: 
  Country: None (occurrence: None)
  Receive Date: 20110125
  Receipt Date: 20110117
  Transmission Date: 20110831
  Serious: Yes (Death)
  Sender: FDA-Public Use
  Company Number: AU-ROCHE-753614

PATIENT
  Age: 74 Year
  Sex: Female
  Weight: 60 kg

DRUGS (5)
  1. TRAMADOL HYDROCHLORIDE [Interacting]
     Route: 065
  2. VENLAFAXINE HYDROCHLORIDE [Interacting]
     Route: 065
  3. VALPROATE SODIUM [Interacting]
     Route: 065
  4. DIAZEPAM [Suspect]
     Route: 065
  5. MORPHINE HYDROCHLORIDE INTRAVENOUS [Interacting]
     Route: 065

REACTIONS (2)
  - DRUG INTERACTION [None]
  - ACCIDENTAL OVERDOSE [None]
